FAERS Safety Report 18175539 (Version 1)
Quarter: 2020Q3

REPORT INFORMATION
  Report Type: Spontaneous
  Country: GB (occurrence: GB)
  Receive Date: 20200820
  Receipt Date: 20200820
  Transmission Date: 20201103
  Serious: Yes (Other)
  Sender: FDA-Public Use
  Company Number: GB-TEVA-2020-GB-1816095

PATIENT
  Age: 22 Year
  Sex: Male
  Weight: 79 kg

DRUGS (2)
  1. DIPHENHYDRAMINE. [Concomitant]
     Active Substance: DIPHENHYDRAMINE
     Dosage: EVERY DAY.
     Dates: start: 20200716, end: 20200723
  2. NAPROXEN. [Suspect]
     Active Substance: NAPROXEN
     Dates: start: 20200726

REACTIONS (1)
  - Rash macular [Recovered/Resolved]

NARRATIVE: CASE EVENT DATE: 20200726
